FAERS Safety Report 19883835 (Version 1)
Quarter: 2021Q3

REPORT INFORMATION
  Report Type: Spontaneous
  Country: US (occurrence: US)
  Receive Date: 20210925
  Receipt Date: 20210925
  Transmission Date: 20211014
  Serious: Yes (Other)
  Sender: FDA-Public Use
  Company Number: None

PATIENT
  Age: 36 Year
  Sex: Male
  Weight: 86.4 kg

DRUGS (1)
  1. REGEN?COV [Suspect]
     Active Substance: CASIRIVIMAB\IMDEVIMAB
     Indication: COVID-19
     Dosage: ?          QUANTITY:1 BOTTLE;?
     Route: 042
     Dates: start: 20210923, end: 20210923

REACTIONS (16)
  - Multiple sclerosis [None]
  - Hypoaesthesia [None]
  - Infusion site mass [None]
  - Immune system disorder [None]
  - Nervous system disorder [None]
  - Demyelination [None]
  - Paraesthesia [None]
  - Pain in extremity [None]
  - Neuralgia [None]
  - Infusion related reaction [None]
  - Parkinson^s disease [None]
  - Pyrexia [None]
  - Lacrimation increased [None]
  - Dystonia [None]
  - Feeling cold [None]
  - Muscle disorder [None]

NARRATIVE: CASE EVENT DATE: 20210923
